FAERS Safety Report 17811758 (Version 1)
Quarter: 2020Q2

REPORT INFORMATION
  Report Type: Spontaneous
  Country: US (occurrence: US)
  Receive Date: 20200521
  Receipt Date: 20200521
  Transmission Date: 20200714
  Serious: No
  Sender: FDA-Public Use
  Company Number: US-SA-2020SA131194

PATIENT
  Sex: Male

DRUGS (16)
  1. DUPIXENT [Suspect]
     Active Substance: DUPILUMAB
     Indication: CHRONIC RHINOSINUSITIS WITH NASAL POLYPS
     Dosage: 300 MG, QOW
  2. EPINEPHRINE. [Concomitant]
     Active Substance: EPINEPHRINE
     Dosage: UNK UNK, PRN
  3. TOPROL XL [Concomitant]
     Active Substance: METOPROLOL SUCCINATE
  4. OMEPRAZOLE. [Concomitant]
     Active Substance: OMEPRAZOLE
  5. TYLENOL [Concomitant]
     Active Substance: ACETAMINOPHEN
  6. LISINOPRIL. [Concomitant]
     Active Substance: LISINOPRIL
  7. DUPIXENT [Suspect]
     Active Substance: DUPILUMAB
     Indication: ASTHMA
     Dosage: UNK
     Dates: start: 202004, end: 202004
  8. PROAIR HFA [Concomitant]
     Active Substance: ALBUTEROL SULFATE
     Route: 055
  9. SINGULAIR [Concomitant]
     Active Substance: MONTELUKAST SODIUM
  10. VIAGRA [SILDENAFIL] [Concomitant]
  11. ADVAIR HFA [Concomitant]
     Active Substance: FLUTICASONE PROPIONATE\SALMETEROL XINAFOATE
  12. FLECAINIDE [Concomitant]
     Active Substance: FLECAINIDE
  13. NORVASC [Concomitant]
     Active Substance: AMLODIPINE BESYLATE
  14. CELEBREX [Concomitant]
     Active Substance: CELECOXIB
  15. PREDNISONE. [Concomitant]
     Active Substance: PREDNISONE
  16. FLEXERIL [CEFIXIME] [Concomitant]
     Active Substance: CEFIXIME

REACTIONS (1)
  - Injection site erythema [Unknown]

NARRATIVE: CASE EVENT DATE: 2020
